FAERS Safety Report 7364141-1 (Version None)
Quarter: 2011Q1

REPORT INFORMATION
  Report Type: 
  Country: None (occurrence: None)
  Receive Date: 20110316
  Receipt Date: 20110316
  Transmission Date: 20110831
  Serious: Yes (Other)
  Sender: FDA-Public Use
  Company Number: None

PATIENT
  Sex: Female
  Weight: 61.6892 kg

DRUGS (2)
  1. PRAMIPEXOLE DIHYDROCHLORIDE [Suspect]
     Indication: PARKINSON'S DISEASE
     Dosage: 0.75MG 4X DAY ORAL
     Route: 048
     Dates: start: 20110204, end: 20110218
  2. PRAMIPEXOLE DIHYDROCHLORIDE [Suspect]
     Indication: PARKINSON'S DISEASE
     Dosage: 0.75MG 4X DAY ORAL
     Route: 048
     Dates: start: 20110226, end: 20110306

REACTIONS (8)
  - GAIT DISTURBANCE [None]
  - TREMOR [None]
  - DEPRESSION [None]
  - CONDITION AGGRAVATED [None]
  - PARKINSON'S DISEASE [None]
  - ACTIVITIES OF DAILY LIVING IMPAIRED [None]
  - NAUSEA [None]
  - REGRESSIVE BEHAVIOUR [None]
